FAERS Safety Report 19449205 (Version 3)
Quarter: 2021Q3

REPORT INFORMATION
  Report Type: Report from Study
  Country: GB (occurrence: GB)
  Receive Date: 20210622
  Receipt Date: 20210806
  Transmission Date: 20211014
  Serious: No
  Sender: FDA-Public Use
  Company Number: GB-GW PHARMA-202106GBGW02948

PATIENT

DRUGS (4)
  1. EPIDYOLEX [Suspect]
     Active Substance: CANNABIDIOL
     Indication: LENNOX-GASTAUT SYNDROME
     Dosage: 19 MG/KG/DAY (150)
     Route: 048
     Dates: start: 20200520, end: 20210224
  2. CLOBAZAM. [Concomitant]
     Active Substance: CLOBAZAM
     Indication: PRODUCT USED FOR UNKNOWN INDICATION
     Dosage: 5 MILLIGRAM, BID
     Route: 065
  3. LEVETIRACETAM. [Concomitant]
     Active Substance: LEVETIRACETAM
     Indication: PRODUCT USED FOR UNKNOWN INDICATION
     Dosage: 700 MILLIGRAM, BID
     Route: 065
  4. RUFINAMIDE [Concomitant]
     Active Substance: RUFINAMIDE
     Indication: PRODUCT USED FOR UNKNOWN INDICATION
     Dosage: 440 MILLIGRAM, BID
     Route: 065

REACTIONS (2)
  - Therapeutic product effect decreased [Unknown]
  - Seizure [Not Recovered/Not Resolved]
